FAERS Safety Report 6537590-9 (Version None)
Quarter: 2010Q1

REPORT INFORMATION
  Report Type: 
  Country: None (occurrence: None)
  Receive Date: 20100114
  Receipt Date: 20091202
  Transmission Date: 20100710
  Serious: Yes (Hospitalization)
  Sender: FDA-Public Use
  Company Number: A0731264A

PATIENT
  Age: 52 Year
  Sex: Male
  Weight: 89.1 kg

DRUGS (4)
  1. AVANDIA [Suspect]
     Dosage: 4MG TWICE PER DAY
     Route: 048
     Dates: start: 19990101, end: 20041101
  2. PRAVACHOL [Concomitant]
     Dates: start: 20040901
  3. VIAGRA [Concomitant]
     Dates: start: 20060401
  4. ALTACE [Concomitant]

REACTIONS (2)
  - CORONARY ARTERY DISEASE [None]
  - MYOCARDIAL INFARCTION [None]
